FAERS Safety Report 19618390 (Version 3)
Quarter: 2022Q1

REPORT INFORMATION
  Report Type: Spontaneous
  Country: US (occurrence: None)
  Receive Date: 20210727
  Receipt Date: 20220107
  Transmission Date: 20220423
  Serious: Yes (Other)
  Sender: FDA-Public Use
  Company Number: US-ROCHE-2781757

PATIENT
  Sex: Female

DRUGS (2)
  1. CAPECITABINE [Suspect]
     Active Substance: CAPECITABINE
     Indication: Product used for unknown indication
     Route: 065
  2. TUKYSA [Suspect]
     Active Substance: TUCATINIB
     Indication: Breast cancer female
     Route: 065

REACTIONS (12)
  - Palmar-plantar erythrodysaesthesia syndrome [Unknown]
  - Brain neoplasm [Unknown]
  - Headache [Unknown]
  - Abdominal pain [Unknown]
  - Fatigue [Unknown]
  - Nausea [Unknown]
  - Nail bed disorder [Unknown]
  - Pain [Unknown]
  - Diarrhoea [Recovering/Resolving]
  - Hepatic function abnormal [Unknown]
  - White blood cell count decreased [Unknown]
  - Haemoglobin decreased [Unknown]
